FAERS Safety Report 9747061 (Version 1)
Quarter: 2013Q4

REPORT INFORMATION
  Report Type: Spontaneous
  Country: TW (occurrence: TW)
  Receive Date: 20131211
  Receipt Date: 20131211
  Transmission Date: 20140711
  Serious: Yes (Death, Other)
  Sender: FDA-Public Use
  Company Number: TW-SPECTRUM PHARMACEUTICALS, INC.-13-F-TW-00318

PATIENT
  Age: 80 Year
  Sex: Male
  Weight: 59.4 kg

DRUGS (4)
  1. FLUOROURACIL [Suspect]
     Indication: COLON CANCER METASTATIC
     Dosage: UNK
     Route: 042
     Dates: start: 20120605, end: 20120607
  2. IRINOTECAN [Suspect]
     Indication: COLON CANCER METASTATIC
     Dosage: 144 MG/M2, QD
     Route: 042
     Dates: start: 20120605, end: 20120607
  3. FOLINIC ACID [Suspect]
     Indication: COLON CANCER METASTATIC
     Dosage: UNK
     Route: 042
     Dates: start: 20120605, end: 20120607
  4. BEVACIZUMAB [Suspect]
     Indication: COLON CANCER METASTATIC
     Dosage: 300 MG, QD
     Route: 042
     Dates: start: 20120605, end: 20120607

REACTIONS (8)
  - Tumour lysis syndrome [Fatal]
  - Metabolic acidosis [Fatal]
  - Hypotension [Fatal]
  - Respiratory failure [Fatal]
  - Haematemesis [Unknown]
  - Melaena [Unknown]
  - Nausea [Unknown]
  - Decreased appetite [Unknown]
